FAERS Safety Report 15899125 (Version 1)
Quarter: 2019Q1

REPORT INFORMATION
  Report Type: Other
  Country: JP (occurrence: JP)
  Receive Date: 20190201
  Receipt Date: 20190201
  Transmission Date: 20190417
  Serious: Yes (Hospitalization, Other)
  Sender: FDA-Public Use
  Company Number: JP-AJANTA PHARMA USA INC.-2062029

PATIENT
  Age: 44 Year
  Sex: Male

DRUGS (2)
  1. RISPERIDONE. [Suspect]
     Active Substance: RISPERIDONE
     Indication: PARANOIA
  2. HALOPERIDOL. [Suspect]
     Active Substance: HALOPERIDOL

REACTIONS (2)
  - Rapid eye movement sleep behaviour disorder [Recovered/Resolved]
  - Neuroleptic malignant syndrome [Recovered/Resolved]

NARRATIVE: CASE EVENT DATE: 20180910
